FAERS Safety Report 8590850-2 (Version None)
Quarter: 2012Q3

REPORT INFORMATION
  Report Type: 
  Country: None (occurrence: None)
  Receive Date: 20120731
  Receipt Date: 20120725
  Transmission Date: 20120928
  Serious: Yes (Death, Hospitalization)
  Sender: FDA-Public Use
  Company Number: 136262-1

PATIENT
  Age: 59 Year
  Sex: Male
  Weight: 72 kg

DRUGS (2)
  1. LEUCOVORIN CALCIUM [Suspect]
     Indication: COLON CANCER METASTATIC
     Dosage: 400 MG/M2 INTRAVENOUSLY ON DAY ONE OF EACH
     Route: 042
     Dates: start: 20120425, end: 20120524
  2. LEUCOVORIN CALCIUM [Suspect]
     Indication: COLORECTAL CANCER
     Dosage: 400 MG/M2 INTRAVENOUSLY ON DAY ONE OF EACH
     Route: 042
     Dates: start: 20120425, end: 20120524

REACTIONS (5)
  - FATIGUE [None]
  - ANAEMIA [None]
  - SEPSIS [None]
  - DIARRHOEA [None]
  - PNEUMONIA [None]
